FAERS Safety Report 14813557 (Version 1)
Quarter: 2018Q2

REPORT INFORMATION
  Report Type: Report from Study
  Country: None (occurrence: GR)
  Receive Date: 20180426
  Receipt Date: 20180426
  Transmission Date: 20180711
  Serious: Yes (Disabling)
  Sender: FDA-Public Use
  Company Number: GR-ABBVIE-18K-066-2335241-00

PATIENT
  Sex: Female

DRUGS (1)
  1. DUODOPA [Suspect]
     Active Substance: CARBIDOPA\LEVODOPA
     Indication: PARKINSON^S DISEASE
     Dosage: MORNING DOSE:9.0ML; CONTINUOUS RATE:3.3ML/H; EXTRA DOSE:0.1ML
     Route: 050
     Dates: start: 2011, end: 20180423

REACTIONS (2)
  - Aphasia [Not Recovered/Not Resolved]
  - Hypophagia [Not Recovered/Not Resolved]
